FAERS Safety Report 4687866-5 (Version None)
Quarter: 2005Q2

REPORT INFORMATION
  Report Type: 
  Country: None (occurrence: None)
  Receive Date: 20050608
  Receipt Date: 20050525
  Transmission Date: 20051028
  Serious: Yes (Other)
  Sender: FDA-Public Use
  Company Number: 2005080173

PATIENT
  Age: 51 Year
  Sex: Female
  Weight: 74.8435 kg

DRUGS (4)
  1. CELEBREX [Suspect]
     Indication: ARTHRALGIA
     Dosage: 500 MG (500 MG, 1 IN 1 D)
     Dates: start: 19880501
  2. COUMADIN [Suspect]
     Indication: CARDIAC OPERATION
     Dates: start: 19880501
  3. ACCUPRIL [Concomitant]
  4. HYDROCHLOROTHIAZIDE [Concomitant]

REACTIONS (7)
  - BLOOD PRESSURE DECREASED [None]
  - CONVULSION [None]
  - DRUG INTERACTION [None]
  - FALL [None]
  - LOSS OF EMPLOYMENT [None]
  - ROAD TRAFFIC ACCIDENT [None]
  - TRANSIENT ISCHAEMIC ATTACK [None]
